FAERS Safety Report 9867113 (Version 1)
Quarter: 2014Q1

REPORT INFORMATION
  Report Type: Spontaneous
  Country: US (occurrence: US)
  Receive Date: 20140204
  Receipt Date: 20140204
  Transmission Date: 20141002
  Serious: Yes (Hospitalization)
  Sender: FDA-Public Use
  Company Number: US-BAYER-2014-017036

PATIENT
  Age: 25 Year
  Sex: Female

DRUGS (4)
  1. YAZ [Suspect]
  2. ADDERALL [Concomitant]
     Dosage: 10 MG, BID
     Route: 048
  3. PROZAC [Concomitant]
     Dosage: 20 MG, QD
  4. CEPHALEXIN [Concomitant]
     Dosage: 500 MG, TID
     Route: 048

REACTIONS (2)
  - Thrombophlebitis superficial [None]
  - Deep vein thrombosis [None]
